FAERS Safety Report 25057960 (Version 1)
Quarter: 2025Q1

REPORT INFORMATION
  Report Type: Spontaneous
  Country: US (occurrence: None)
  Receive Date: 20250309
  Receipt Date: 20250309
  Transmission Date: 20250408
  Serious: No
  Sender: FDA-CTU
  Company Number: None

PATIENT
  Age: 63 Year
  Weight: 64.8 kg

DRUGS (7)
  1. REPATHA [Suspect]
     Active Substance: EVOLOCUMAB
     Indication: Blood cholesterol increased
     Route: 058
     Dates: start: 20240522, end: 20250224
  2. REPATHA [Suspect]
     Active Substance: EVOLOCUMAB
     Indication: Low density lipoprotein increased
  3. VITAMIN D [Concomitant]
     Active Substance: VITAMIN D NOS
  4. C [Concomitant]
  5. VITAMIN B COMPLEX [Concomitant]
     Active Substance: CYANOCOBALAMIN\DEXPANTHENOL\NIACINAMIDE\PYRIDOXINE HYDROCHLORIDE\RIBOFLAVIN 5^-PHOSPHATE SODIUM\THIA
  6. FISH OIL [Concomitant]
     Active Substance: FISH OIL
  7. MAGNESIUM [Suspect]
     Active Substance: MAGNESIUM

REACTIONS (6)
  - Neck pain [None]
  - Arthralgia [None]
  - Back pain [None]
  - Pain in extremity [None]
  - Treatment noncompliance [None]
  - Inappropriate schedule of product administration [None]

NARRATIVE: CASE EVENT DATE: 20241122
